FAERS Safety Report 7662786 (Version 6)
Quarter: 2013Q1

REPORT INFORMATION
  Report Type: Spontaneous
  Country: US (occurrence: US)
  Receive Date: 20101110
  Receipt Date: 20130109
  Transmission Date: 20140127
  Serious: Yes (Other)
  Sender: FDA-Public Use
  Company Number: US-JNJFOC-20100805897

PATIENT
  Sex: Male

DRUGS (3)
  1. LEVAQUIN [Suspect]
     Indication: SURGERY
     Route: 048
     Dates: start: 2004, end: 2004
  2. VITAMIN B12 [Concomitant]
     Route: 065
  3. MULTIVITAMINS [Concomitant]
     Route: 065

REACTIONS (4)
  - Rotator cuff syndrome [Not Recovered/Not Resolved]
  - Carpal tunnel syndrome [Unknown]
  - Tenosynovitis stenosans [Unknown]
  - Ligament sprain [Recovering/Resolving]
